FAERS Safety Report 6128872-3 (Version None)
Quarter: 2009Q1

REPORT INFORMATION
  Report Type: 
  Country: None (occurrence: None)
  Receive Date: 20090320
  Receipt Date: 20090312
  Transmission Date: 20090719
  Serious: Yes (Other)
  Sender: FDA-Public Use
  Company Number: CHPA2009US06577

PATIENT
  Age: 45 Year
  Sex: Female
  Weight: 81.6 kg

DRUGS (1)
  1. THERAFLU WARMING RELIEF COLD + CHEST CONG (NCH)(ACETAMINOPHEN(PARACETA [Suspect]
     Dosage: ORAL
     Route: 048
     Dates: start: 20090311, end: 20090311

REACTIONS (1)
  - HALLUCINATION [None]
